FAERS Safety Report 23139703 (Version 2)
Quarter: 2023Q4

REPORT INFORMATION
  Report Type: Report from Study
  Country: CA (occurrence: CA)
  Receive Date: 20231102
  Receipt Date: 20231222
  Transmission Date: 20240109
  Serious: Yes (Other)
  Sender: FDA-Public Use
  Company Number: CA-002147023-NVSC2022CA202114

PATIENT
  Sex: Male

DRUGS (1)
  1. HYRIMOZ [Suspect]
     Active Substance: ADALIMUMAB-ADAZ
     Indication: Crohn^s disease
     Dosage: 40 MG, QW
     Route: 058
     Dates: start: 20220103

REACTIONS (11)
  - Crohn^s disease [Unknown]
  - Dyspepsia [Unknown]
  - Vomiting [Unknown]
  - Haemorrhage [Unknown]
  - Abscess oral [Not Recovered/Not Resolved]
  - Constipation [Unknown]
  - Haemorrhoids [Unknown]
  - Tooth loss [Not Recovered/Not Resolved]
  - Drug ineffective [Unknown]
  - Off label use [Unknown]
  - Circumstance or information capable of leading to medication error [Unknown]
